FAERS Safety Report 8169378-X (Version None)
Quarter: 2012Q1

REPORT INFORMATION
  Report Type: 
  Country: None (occurrence: None)
  Receive Date: 20120222
  Receipt Date: 20120209
  Transmission Date: 20120608
  Serious: Yes (Disabling, Other)
  Sender: FDA-Public Use
  Company Number: 2010AL001460

PATIENT
  Sex: Female

DRUGS (38)
  1. METOCLOPRAMIDE HYDROCHLORIDE [Suspect]
     Indication: GASTROOESOPHAGEAL REFLUX DISEASE
     Dosage: 10 MG, PO
     Route: 048
     Dates: start: 20040223, end: 20091130
  2. ACTONEL  HYDROCODONE/APAP [Concomitant]
  3. LEVAQUIN [Concomitant]
  4. LORATADINE [Concomitant]
  5. ZOCOR [Concomitant]
  6. NEXIUM [Concomitant]
  7. ZYRTEC [Concomitant]
  8. KLOR-CON [Concomitant]
  9. MECLIZINE [Concomitant]
  10. METRONIDAZOLE [Concomitant]
  11. BACTRIM [Concomitant]
  12. CIMETIDINE [Concomitant]
  13. PROTONIX [Concomitant]
  14. AMOXICILLIN [Concomitant]
  15. DARVON [Concomitant]
  16. GUAIFENESIN [Concomitant]
  17. ALPRAZOLAM [Concomitant]
  18. MELOXICAM [Concomitant]
  19. FLEXTRA [Concomitant]
  20. HYDROCHLOROTHIAZIDE [Concomitant]
  21. GABAPENTIN [Concomitant]
  22. MOTROFURANTOIN [Concomitant]
  23. CEPHALEXIN [Concomitant]
  24. CYCLOBENZAPRINE [Concomitant]
  25. RISPERDAL [Concomitant]
  26. METHYLPREDNISOLONE ACETATE [Concomitant]
  27. PANLOR [Concomitant]
  28. RANITIDINE [Concomitant]
  29. BUSPIRONE HCL [Concomitant]
  30. ASPIRIN [Concomitant]
  31. AMANTADINE HCL [Concomitant]
  32. WELLBUTRIN [Concomitant]
  33. DIAZEPAM [Concomitant]
  34. DOXYCYCLINE [Concomitant]
  35. FAMOTIDINE [Concomitant]
  36. AZITHROMYCIN [Concomitant]
  37. AUGMENTIN '125' [Concomitant]
  38. PREVACID [Concomitant]

REACTIONS (71)
  - ARTHROSCOPY [None]
  - ACUTE SINUSITIS [None]
  - BRONCHITIS [None]
  - VERTIGO [None]
  - GAIT DISTURBANCE [None]
  - TONGUE PARALYSIS [None]
  - ASTHENIA [None]
  - DEPRESSION [None]
  - FACIAL PAIN [None]
  - BACK PAIN [None]
  - WHEEZING [None]
  - DYSGEUSIA [None]
  - INTERVERTEBRAL DISC DISORDER [None]
  - JOINT RANGE OF MOTION DECREASED [None]
  - ELECTROCARDIOGRAM ST SEGMENT ABNORMAL [None]
  - SIGMOIDITIS [None]
  - DYSKINESIA [None]
  - INCORRECT DRUG ADMINISTRATION DURATION [None]
  - NERVOUS SYSTEM DISORDER [None]
  - UNEVALUABLE EVENT [None]
  - HYPERCHOLESTEROLAEMIA [None]
  - MUSCULOSKELETAL CHEST PAIN [None]
  - URINARY TRACT INFECTION [None]
  - NEUROPATHY PERIPHERAL [None]
  - DIVERTICULUM [None]
  - LABYRINTHITIS [None]
  - DYSPNOEA [None]
  - ABDOMINAL PAIN [None]
  - HAEMATURIA [None]
  - DYSPHAGIA [None]
  - OSTEOARTHRITIS [None]
  - HELICOBACTER TEST POSITIVE [None]
  - HEPATIC CYST [None]
  - ECONOMIC PROBLEM [None]
  - ACTIVITIES OF DAILY LIVING IMPAIRED [None]
  - PROTRUSION TONGUE [None]
  - HYPERTENSION [None]
  - CHEST PAIN [None]
  - CHEST DISCOMFORT [None]
  - PYREXIA [None]
  - ABDOMINAL ADHESIONS [None]
  - PAIN [None]
  - EMOTIONAL DISTRESS [None]
  - AKATHISIA [None]
  - IMPAIRED SELF-CARE [None]
  - MEMORY IMPAIRMENT [None]
  - DIZZINESS [None]
  - EAR INFECTION [None]
  - COUGH [None]
  - OTITIS MEDIA [None]
  - MENTAL DISORDER [None]
  - ANXIETY [None]
  - MUSCLE SPASMS [None]
  - FATIGUE [None]
  - PLEURISY [None]
  - SYNOVIAL CYST [None]
  - ABDOMINAL PAIN UPPER [None]
  - INJURY [None]
  - HEADACHE [None]
  - TOBACCO USER [None]
  - SINUS CONGESTION [None]
  - GASTROOESOPHAGEAL REFLUX DISEASE [None]
  - PALPITATIONS [None]
  - PEPTIC ULCER [None]
  - HYPOAESTHESIA [None]
  - PAIN IN EXTREMITY [None]
  - ELECTROCARDIOGRAM T WAVE ABNORMAL [None]
  - EXTRAPYRAMIDAL DISORDER [None]
  - TARDIVE DYSKINESIA [None]
  - DEFORMITY [None]
  - TREMOR [None]
